FAERS Safety Report 7291701-9 (Version None)
Quarter: 2011Q1

REPORT INFORMATION
  Report Type: 
  Country: None (occurrence: None)
  Receive Date: 20110214
  Receipt Date: 20110207
  Transmission Date: 20110831
  Serious: Yes (Other)
  Sender: FDA-Public Use
  Company Number: CA-PFIZER INC-2010018529

PATIENT
  Age: 37 Year
  Sex: Male
  Weight: 83.9 kg

DRUGS (1)
  1. CHAMPIX [Suspect]
     Indication: SMOKING CESSATION THERAPY
     Dosage: UNK
     Dates: end: 20080105

REACTIONS (8)
  - NIGHTMARE [None]
  - HYPERPHAGIA [None]
  - HEADACHE [None]
  - MUSCLE STRAIN [None]
  - ABNORMAL BEHAVIOUR [None]
  - POOR QUALITY SLEEP [None]
  - NERVOUSNESS [None]
  - IMPAIRED DRIVING ABILITY [None]
